FAERS Safety Report 24602968 (Version 1)
Quarter: 2024Q4

REPORT INFORMATION
  Report Type: Spontaneous
  Country: US (occurrence: US)
  Receive Date: 20241111
  Receipt Date: 20241111
  Transmission Date: 20250115
  Serious: Yes (Other)
  Sender: PFIZER
  Company Number: US-PFIZER INC-PV202400144592

PATIENT
  Age: 90 Year
  Sex: Male

DRUGS (2)
  1. BRAFTOVI [Suspect]
     Active Substance: ENCORAFENIB
     Indication: Metastatic malignant melanoma
     Dosage: 225 MG, DAILY FOR 30 DAYS
     Route: 048
     Dates: start: 20241029
  2. MEKTOVI [Suspect]
     Active Substance: BINIMETINIB
     Indication: Metastatic malignant melanoma
     Dosage: 30 MG, EVERY 12 HOURS FOR 30 DAYS
     Route: 048
     Dates: start: 20241029

REACTIONS (2)
  - Chronic kidney disease [Unknown]
  - Anaemia [Unknown]
